FAERS Safety Report 4354364-8 (Version None)
Quarter: 2004Q2

REPORT INFORMATION
  Report Type: 
  Country: None (occurrence: None)
  Receive Date: 20040503
  Receipt Date: 20040419
  Transmission Date: 20050107
  Serious: Yes (Other)
  Sender: FDA-Public Use
  Company Number: 2004025379

PATIENT
  Sex: Female
  Weight: 50.8029 kg

DRUGS (2)
  1. FELDENE [Suspect]
     Indication: ARTHRITIS
     Dosage: 40 MG (TWICE A DAY), ORAL
     Route: 048
  2. ESOMEPRAZOLE (ESOMEPRAZOLE) [Concomitant]

REACTIONS (8)
  - ARTHROPATHY [None]
  - ASTHENIA [None]
  - DISEASE PROGRESSION [None]
  - DISEASE RECURRENCE [None]
  - DRUG EFFECT DECREASED [None]
  - FATIGUE [None]
  - HAEMOPHILIA [None]
  - MULTIPLE ALLERGIES [None]
